FAERS Safety Report 8368120-7 (Version None)
Quarter: 2012Q2

REPORT INFORMATION
  Report Type: 
  Country: None (occurrence: None)
  Receive Date: 20120517
  Receipt Date: 20120509
  Transmission Date: 20120825
  Serious: Yes (Hospitalization, Other)
  Sender: FDA-Public Use
  Company Number: FR-PFIZER INC-2012117848

PATIENT
  Age: 89 Year
  Sex: Male

DRUGS (10)
  1. NEXIUM [Concomitant]
     Dosage: UNK
  2. RAMIPRIL [Suspect]
     Dosage: 2.5 MG, DAILY
     Route: 048
     Dates: end: 20120404
  3. ESCITALOPRAM [Concomitant]
     Dosage: UNK
  4. LEVOTHYROXINE SODIUM [Concomitant]
     Dosage: UNK
  5. ALFUZOSIN HCL [Concomitant]
     Dosage: UNK
  6. PENTOXIFYLLINE [Concomitant]
     Dosage: UNK
  7. RAMIPRIL [Suspect]
     Dosage: 1.25 MG, DAILY
     Dates: start: 20120401
  8. CORDARONE [Concomitant]
     Dosage: UNK
  9. ANASTROZOLE [Concomitant]
     Dosage: UNK
  10. ZOCOR [Concomitant]
     Dosage: UNK

REACTIONS (3)
  - HYPOTENSION [None]
  - CEREBROVASCULAR ACCIDENT [None]
  - NORMOCHROMIC NORMOCYTIC ANAEMIA [None]
